FAERS Safety Report 25806210 (Version 1)
Quarter: 2025Q3

REPORT INFORMATION
  Report Type: Report from Study
  Country: US (occurrence: US)
  Receive Date: 20250916
  Receipt Date: 20250916
  Transmission Date: 20251021
  Serious: No
  Sender: SUNOVION
  Company Number: US-SMPA-2025SPA011572

PATIENT
  Age: 70 Year
  Sex: Male

DRUGS (6)
  1. ORGOVYX [Suspect]
     Active Substance: RELUGOLIX
     Indication: Product used for unknown indication
     Route: 048
  2. ORGOVYX [Suspect]
     Active Substance: RELUGOLIX
     Route: 048
  3. OMEPRAZOLE [Concomitant]
     Active Substance: OMEPRAZOLE
  4. PROBIOTICS NOS [Concomitant]
     Active Substance: PROBIOTICS NOS
  5. VITAMIN B [Concomitant]
     Active Substance: VITAMIN B
  6. VITAMIN D NOS [Concomitant]
     Active Substance: CHOLECALCIFEROL\ERGOCALCIFEROL

REACTIONS (1)
  - Hot flush [Unknown]
